FAERS Safety Report 9305985 (Version 2)
Quarter: 2013Q3

REPORT INFORMATION
  Report Type: Spontaneous
  Country: CN (occurrence: None)
  Receive Date: 20130520
  Receipt Date: 20130716
  Transmission Date: 20140515
  Serious: Yes (Hospitalization)
  Sender: FDA-Public Use
  Company Number: VAL_02518_2013

PATIENT
  Age: 28 Year
  Sex: Female

DRUGS (2)
  1. PARLODEL (PARLODEL-BROMOCRIPTINE MESILATE) [Suspect]
     Indication: BLOOD PROLACTIN INCREASED
     Dosage: (DF)
  2. CHINESE MEDICINE [Suspect]
     Indication: BLOOD PROLACTIN INCREASED
     Dosage: (DF)

REACTIONS (15)
  - Cushing^s syndrome [None]
  - Pregnancy [None]
  - Exposure during pregnancy [None]
  - Central obesity [None]
  - Acne [None]
  - Petechiae [None]
  - Protein urine present [None]
  - Blood pressure fluctuation [None]
  - Secondary hypertension [None]
  - Folliculitis [None]
  - Hypokalaemia [None]
  - Labour induction [None]
  - Syncope [None]
  - Adrenal adenoma [None]
  - Muscle spasms [None]
